FAERS Safety Report 26091922 (Version 1)
Quarter: 2025Q4

REPORT INFORMATION
  Report Type: Spontaneous
  Country: CN (occurrence: CN)
  Receive Date: 20251126
  Receipt Date: 20251126
  Transmission Date: 20260117
  Serious: Yes (Other)
  Sender: COSETTE PHARMACEUTICALS INC
  Company Number: CN-SA-2025SA341151

PATIENT
  Age: 77 Year
  Sex: Female
  Weight: 55 kg

DRUGS (1)
  1. AMBIEN [Suspect]
     Active Substance: ZOLPIDEM TARTRATE
     Indication: Sleep disorder
     Dosage: 10 MG, HS
     Route: 048
     Dates: start: 20250902, end: 20251102

REACTIONS (3)
  - Unresponsive to stimuli [Recovered/Resolved]
  - Somnambulism [Recovered/Resolved]
  - Amnesia [Recovered/Resolved]

NARRATIVE: CASE EVENT DATE: 20251102
